FAERS Safety Report 6108565-9 (Version None)
Quarter: 2009Q1

REPORT INFORMATION
  Report Type: 
  Country: None (occurrence: None)
  Receive Date: 20090309
  Receipt Date: 20090306
  Transmission Date: 20090719
  Serious: Yes (Other)
  Sender: FDA-Public Use
  Company Number: CA-ASTRAZENECA-2009UW06052

PATIENT
  Age: 50 Year
  Sex: Male
  Weight: 81.6 kg

DRUGS (1)
  1. CRESTOR [Suspect]
     Route: 048
     Dates: start: 20040101, end: 20090301

REACTIONS (1)
  - SERUM FERRITIN INCREASED [None]
